FAERS Safety Report 17537655 (Version 2)
Quarter: 2020Q1

REPORT INFORMATION
  Report Type: Spontaneous
  Country: US (occurrence: US)
  Receive Date: 20200313
  Receipt Date: 20200318
  Transmission Date: 20200409
  Serious: No
  Sender: FDA-Public Use
  Company Number: US-JNJFOC-20200233199

PATIENT
  Sex: Male

DRUGS (5)
  1. PEPCID AC [Suspect]
     Active Substance: FAMOTIDINE
     Indication: NAUSEA
  2. PEPCID AC [Suspect]
     Active Substance: FAMOTIDINE
     Indication: ABDOMINAL PAIN UPPER
     Dosage: 1 TABLET ONCE A DAY
     Route: 048
     Dates: start: 20200213
  3. PEPCID AC [Suspect]
     Active Substance: FAMOTIDINE
     Indication: ABDOMINAL DISCOMFORT
  4. PEPCID AC [Suspect]
     Active Substance: FAMOTIDINE
     Indication: FLATULENCE
  5. PEPCID AC [Suspect]
     Active Substance: FAMOTIDINE
     Indication: DYSPEPSIA

REACTIONS (2)
  - Drug ineffective [Unknown]
  - Product use in unapproved indication [Unknown]

NARRATIVE: CASE EVENT DATE: 202002
